FAERS Safety Report 18283147 (Version 9)
Quarter: 2021Q4

REPORT INFORMATION
  Report Type: Spontaneous
  Country: SE (occurrence: SE)
  Receive Date: 20200918
  Receipt Date: 20211101
  Transmission Date: 20220303
  Serious: Yes (Life-Threatening, Hospitalization, Other)
  Sender: FDA-Public Use
  Company Number: SE-MYLANLABS-2020M1080658

PATIENT
  Age: 61 Year
  Sex: Female

DRUGS (14)
  1. VANCOMYCIN [Suspect]
     Active Substance: VANCOMYCIN
     Indication: Prophylaxis
     Dosage: UNK
     Route: 042
     Dates: start: 20120202, end: 20120223
  2. CYTARABINE [Suspect]
     Active Substance: CYTARABINE
     Indication: Acute myeloid leukaemia
     Dosage: 100 MILLIGRAM, QD (50 MG, BID )
     Route: 058
     Dates: start: 20101026
  3. ACYCLOVIR [Suspect]
     Active Substance: ACYCLOVIR
     Indication: Oral herpes
     Dosage: UNK
     Route: 048
  4. ACYCLOVIR [Suspect]
     Active Substance: ACYCLOVIR
     Indication: Oral herpes
     Dosage: UNK
     Route: 042
     Dates: start: 20120220, end: 20120220
  5. ACYCLOVIR [Suspect]
     Active Substance: ACYCLOVIR
     Indication: Oral herpes
     Dosage: UNK
     Route: 042
     Dates: start: 20120220, end: 20120220
  6. CIPROFLOXACIN [Suspect]
     Active Substance: CIPROFLOXACIN
     Indication: Prophylaxis
     Dosage: UNK
     Route: 042
     Dates: start: 20120202, end: 20120223
  7. CIPROFLOXACIN [Suspect]
     Active Substance: CIPROFLOXACIN
     Indication: Prophylaxis
     Dosage: UNK
     Route: 042
     Dates: start: 20120202, end: 20120223
  8. IMIPENEM AND CILASTATIN [Suspect]
     Active Substance: CILASTATIN SODIUM\IMIPENEM
     Indication: Product used for unknown indication
     Dosage: UNK
     Route: 042
     Dates: start: 20120202, end: 20120223
  9. IMIPENEM [Suspect]
     Active Substance: IMIPENEM
     Indication: Prophylaxis
     Dosage: UNK
     Route: 042
     Dates: start: 20120202, end: 20120223
  10. GEMTUZUMAB OZOGAMICIN [Concomitant]
     Active Substance: GEMTUZUMAB OZOGAMICIN
     Indication: Product used for unknown indication
     Dosage: UNK
     Route: 065
  11. CYTARABINE [Concomitant]
     Active Substance: CYTARABINE
     Indication: Acute myeloid leukaemia
     Dosage: 50 MG, BID
     Route: 058
     Dates: start: 20101026
  12. MYLOTARG                           /01542102/ [Concomitant]
     Indication: Acute myeloid leukaemia
     Dosage: 9 MILLIGRAM/SQ. METER, QD
     Route: 042
     Dates: end: 20120229
  13. DAUNORUBICIN HYDROCHLORIDE [Concomitant]
     Active Substance: DAUNORUBICIN HYDROCHLORIDE
     Indication: Acute myeloid leukaemia
     Dosage: UNK
     Route: 042
     Dates: start: 20100826, end: 20120229
  14. CYTARABINE [Concomitant]
     Active Substance: CYTARABINE
     Dosage: UNK

REACTIONS (1)
  - Acute generalised exanthematous pustulosis [Recovered/Resolved]

NARRATIVE: CASE EVENT DATE: 20120224
